FAERS Safety Report 8198420-5 (Version None)
Quarter: 2012Q1

REPORT INFORMATION
  Report Type: 
  Country: None (occurrence: None)
  Receive Date: 20120309
  Receipt Date: 20111219
  Transmission Date: 20120608
  Serious: No
  Sender: FDA-Public Use
  Company Number: US-AMGEN-USASP2011058438

PATIENT
  Age: 91 Year
  Sex: Female
  Weight: 51.701 kg

DRUGS (10)
  1. PREDNISONE [Concomitant]
  2. METOPROLOL SUCCINATE [Concomitant]
  3. NITROGLYCERIN [Concomitant]
  4. NEXIUM [Concomitant]
  5. PROLIA [Suspect]
     Indication: OSTEOPOROSIS POSTMENOPAUSAL
     Dosage: UNK UNK, Q6MO
     Dates: start: 20110602
  6. LISINOPRIL [Concomitant]
  7. PROLIA [Suspect]
     Dosage: UNK, Q6MO
     Dates: start: 20111208
  8. LEVOTHYROXINE SODIUM [Concomitant]
  9. AMLODIPINE [Concomitant]
  10. CALCITONIN PREPARATIONS [Concomitant]

REACTIONS (1)
  - DECREASED APPETITE [None]
